FAERS Safety Report 20827508 (Version 2)
Quarter: 2022Q2

REPORT INFORMATION
  Report Type: Spontaneous
  Country: US (occurrence: US)
  Receive Date: 20220513
  Receipt Date: 20220615
  Transmission Date: 20220721
  Serious: No
  Sender: FDA-Public Use
  Company Number: US-PFIZER INC-202200643925

PATIENT
  Age: 86 Year
  Sex: Female

DRUGS (1)
  1. OGEN [Suspect]
     Active Substance: ESTROPIPATE
     Dosage: 1.25MG

REACTIONS (1)
  - Insomnia [Unknown]
